FAERS Safety Report 11977189 (Version 3)
Quarter: 2019Q2

REPORT INFORMATION
  Report Type: Report from Study
  Country: FR (occurrence: FR)
  Receive Date: 20160129
  Receipt Date: 20190525
  Transmission Date: 20190711
  Serious: Yes (Hospitalization, Other)
  Sender: FDA-Public Use
  Company Number: PHHY2016FR009866

PATIENT
  Age: 54 Year
  Sex: Female

DRUGS (2)
  1. GILENYA [Suspect]
     Active Substance: FINGOLIMOD HYDROCHLORIDE
     Indication: MULTIPLE SCLEROSIS
     Dosage: 0.5 MG, QD
     Route: 048
     Dates: start: 20141118
  2. PROZAC [Concomitant]
     Active Substance: FLUOXETINE HYDROCHLORIDE
     Indication: DEPRESSION
     Dosage: 20 MG, QD
     Route: 048
     Dates: start: 2010

REACTIONS (7)
  - Perirenal haematoma [Unknown]
  - Ureteric obstruction [Unknown]
  - Cough [Recovered/Resolved]
  - Ureterolithiasis [Unknown]
  - Renal colic [Recovering/Resolving]
  - Urinoma [Recovering/Resolving]
  - Ureteric dilatation [Unknown]

NARRATIVE: CASE EVENT DATE: 20150921
